FAERS Safety Report 7043909-5 (Version None)
Quarter: 2010Q4

REPORT INFORMATION
  Report Type: 
  Country: None (occurrence: None)
  Receive Date: 20101012
  Receipt Date: 20101012
  Transmission Date: 20110411
  Serious: No
  Sender: FDA-Public Use
  Company Number: None

PATIENT
  Age: 29 Year
  Sex: Female
  Weight: 67.1324 kg

DRUGS (1)
  1. DIFFERIN [Suspect]
     Indication: ACNE
     Dosage: SMALL DOT ONCE DAILY AT BED TOP
     Route: 061
     Dates: start: 20101003, end: 20101006

REACTIONS (2)
  - BURNING SENSATION [None]
  - RASH [None]
